FAERS Safety Report 9637536 (Version 1)
Quarter: 2013Q4

REPORT INFORMATION
  Report Type: Report from Study
  Country: CA (occurrence: CA)
  Receive Date: 20131022
  Receipt Date: 20131022
  Transmission Date: 20140711
  Serious: Yes (Hospitalization)
  Sender: FDA-Public Use
  Company Number: CA-JNJFOC-20131010086

PATIENT
  Sex: Male
  Weight: 118 kg

DRUGS (2)
  1. REMICADE [Suspect]
     Indication: CROHN^S DISEASE
     Route: 042
     Dates: start: 200901
  2. RISPERIDONE [Concomitant]
     Route: 065

REACTIONS (1)
  - Urinary tract disorder [Recovered/Resolved]
